FAERS Safety Report 13855523 (Version 2)
Quarter: 2017Q4

REPORT INFORMATION
  Report Type: Spontaneous
  Country: US (occurrence: US)
  Receive Date: 20170810
  Receipt Date: 20171207
  Transmission Date: 20180320
  Serious: No
  Sender: FDA-Public Use
  Company Number: US-VIFOR (INTERNATIONAL) INC.-VIT-2017-04767

PATIENT
  Age: 74 Year
  Sex: Male

DRUGS (11)
  1. AMLODIPINE [Concomitant]
     Active Substance: AMLODIPINE BESYLATE
  2. LISINOPRIL. [Concomitant]
     Active Substance: LISINOPRIL
  3. REPAGLINIDE. [Concomitant]
     Active Substance: REPAGLINIDE
  4. ERGOCALCIFEROL. [Concomitant]
     Active Substance: ERGOCALCIFEROL
  5. VYTORIN [Concomitant]
     Active Substance: EZETIMIBE\SIMVASTATIN
  6. CARVEDILOL. [Concomitant]
     Active Substance: CARVEDILOL
  7. WARFARIN [Concomitant]
     Active Substance: WARFARIN
  8. VELTASSA [Suspect]
     Active Substance: PATIROMER
     Indication: HYPERKALAEMIA
     Route: 048
     Dates: start: 20170210
  9. JANUVIA [Concomitant]
     Active Substance: SITAGLIPTIN PHOSPHATE
  10. FENOFIBRATE. [Concomitant]
     Active Substance: FENOFIBRATE
  11. ACETYLSALICYLIC ACID [Concomitant]
     Active Substance: ASPIRIN

REACTIONS (1)
  - Drug dose omission [Unknown]

NARRATIVE: CASE EVENT DATE: 201704
